FAERS Safety Report 7296064-0 (Version None)
Quarter: 2011Q1

REPORT INFORMATION
  Report Type: 
  Country: None (occurrence: None)
  Receive Date: 20110211
  Receipt Date: 20110211
  Transmission Date: 20110831
  Serious: Yes (Other)
  Sender: FDA-Public Use
  Company Number: None

PATIENT
  Sex: Female
  Weight: 72.5755 kg

DRUGS (2)
  1. CYMBALTA [Suspect]
     Indication: MAJOR DEPRESSION
     Dates: start: 20070101
  2. CYMBALTA [Suspect]
     Indication: FIBROMYALGIA
     Dates: start: 20070101

REACTIONS (5)
  - DEPRESSION [None]
  - ANXIETY [None]
  - PANIC ATTACK [None]
  - MIDDLE INSOMNIA [None]
  - INADEQUATE ANALGESIA [None]
